FAERS Safety Report 19711963 (Version 4)
Quarter: 2021Q3

REPORT INFORMATION
  Report Type: Report from Study
  Country: CA (occurrence: CA)
  Receive Date: 20210816
  Receipt Date: 20210914
  Transmission Date: 20211014
  Serious: Yes (Hospitalization, Disabling)
  Sender: FDA-Public Use
  Company Number: CA-EXELIXIS-XL18421043246

PATIENT
  Age: 68 Year
  Sex: Male

DRUGS (22)
  1. CALCIUM PLUS [Concomitant]
     Indication: SUPPLEMENTATION THERAPY
     Dosage: UNK
     Dates: start: 20170101
  2. ATEZOLIZUMAB. [Suspect]
     Active Substance: ATEZOLIZUMAB
     Dosage: 1200 MG, Q3WEEKS
     Route: 042
     Dates: start: 20210707
  3. LIDOCAINE VISCOUS [Concomitant]
     Active Substance: LIDOCAINE HYDROCHLORIDE
     Indication: OROPHARYNGEAL PAIN
     Dosage: UNK
     Dates: start: 20210706
  4. TRIAMTERENE AND HYDROCHLOROTHIAZID [Concomitant]
     Active Substance: HYDROCHLOROTHIAZIDE\TRIAMTERENE
     Indication: HYPERTENSION
     Dosage: UNK
     Dates: start: 19750101
  5. ATEZOLIZUMAB. [Suspect]
     Active Substance: ATEZOLIZUMAB
     Dosage: 1200 MG, Q3WEEKS
     Route: 042
     Dates: start: 20210728
  6. ATORVASTATIN [Concomitant]
     Active Substance: ATORVASTATIN
     Indication: HYPERCHOLESTEROLAEMIA
     Dosage: UNK
     Dates: start: 20080101
  7. DEXAMETHASONE. [Concomitant]
     Active Substance: DEXAMETHASONE
     Indication: FATIGUE
     Dosage: UNK
     Dates: start: 20210525
  8. STOMATOLOGICAL PREPARATIONS [Concomitant]
     Indication: MUCOSAL INFLAMMATION
     Dosage: UNK
  9. VITAMIN D3 [Concomitant]
     Active Substance: CHOLECALCIFEROL
     Indication: SUPPLEMENTATION THERAPY
     Dosage: UNK
     Dates: start: 20170101
  10. XL184 [Suspect]
     Active Substance: CABOZANTINIB
     Indication: HORMONE-REFRACTORY PROSTATE CANCER
     Dosage: 40 MG, QD
     Route: 048
     Dates: start: 20210415, end: 20210803
  11. ATEZOLIZUMAB. [Suspect]
     Active Substance: ATEZOLIZUMAB
     Dosage: 1200 MG, Q3WEEKS
     Route: 042
     Dates: start: 20210527
  12. LEVOTHYROXINE. [Concomitant]
     Active Substance: LEVOTHYROXINE
     Indication: HYPOTHYROIDISM
     Dosage: UNK
     Dates: start: 20210709
  13. TYLENOL [Concomitant]
     Active Substance: ACETAMINOPHEN
     Indication: HEADACHE
     Dosage: UNK
     Dates: start: 20210413
  14. ATEZOLIZUMAB. [Suspect]
     Active Substance: ATEZOLIZUMAB
     Indication: HORMONE-REFRACTORY PROSTATE CANCER
     Dosage: 1200 MG, Q3WEEKS
     Route: 042
     Dates: start: 20210415
  15. LEUPROLIDE ACETATE. [Concomitant]
     Active Substance: LEUPROLIDE ACETATE
     Indication: INHIBITORY DRUG INTERACTION
     Dosage: UNK
     Dates: start: 20200313
  16. VITAMIN B12 [Concomitant]
     Active Substance: CYANOCOBALAMIN
     Indication: SUPPLEMENTATION THERAPY
     Dosage: UNK
     Dates: start: 20170101
  17. SENNA CONCENTRATE [Concomitant]
     Active Substance: SENNA CONCENTRATE
     Dosage: 17.2 MG AT BEDTIME
  18. ATEZOLIZUMAB. [Suspect]
     Active Substance: ATEZOLIZUMAB
     Dosage: 1200 MG, Q3WEEKS
     Route: 042
     Dates: start: 20210617
  19. ALLOPURINOL. [Concomitant]
     Active Substance: ALLOPURINOL
     Indication: GOUT
     Dosage: UNK
     Dates: start: 20150101
  20. OLMESARTAN [Concomitant]
     Active Substance: OLMESARTAN
     Indication: HYPERCHOLESTEROLAEMIA
     Dosage: UNK
     Dates: start: 20150101
  21. VERAPAMIL [Concomitant]
     Active Substance: VERAPAMIL HYDROCHLORIDE
     Indication: HYPERTENSION
     Dosage: UNK
     Dates: start: 20080101
  22. ATEZOLIZUMAB. [Suspect]
     Active Substance: ATEZOLIZUMAB
     Dosage: 1200 MG, Q3WEEKS
     Route: 042
     Dates: start: 20210506

REACTIONS (1)
  - Electrocardiogram QT prolonged [Recovered/Resolved]

NARRATIVE: CASE EVENT DATE: 20210803
